FAERS Safety Report 10337297 (Version 1)
Quarter: 2014Q3

REPORT INFORMATION
  Report Type: Spontaneous
  Country: US (occurrence: US)
  Receive Date: 20140723
  Receipt Date: 20140723
  Transmission Date: 20150326
  Serious: Yes (Hospitalization)
  Sender: FDA-Public Use
  Company Number: PHEH2014US014310

PATIENT
  Sex: Female

DRUGS (8)
  1. CITRACAL [Concomitant]
     Active Substance: CALCIUM CITRATE
     Dosage: UNK UKN, UNK
  2. METOPROLOL [Concomitant]
     Active Substance: METOPROLOL
     Dosage: UNK UKN, UNK
  3. PREDNISONE. [Concomitant]
     Active Substance: PREDNISONE
     Dosage: UNK UKN, UNK
  4. GLEEVEC [Suspect]
     Active Substance: IMATINIB MESYLATE
     Dosage: 200 MG, UNK
     Dates: end: 20140618
  5. DOXYCYCLINE. [Suspect]
     Active Substance: DOXYCYCLINE
     Dosage: UNK UKN, UNK
  6. PEPCID [Concomitant]
     Active Substance: FAMOTIDINE
     Dosage: UNK UKN, UNK
  7. PRADAXA [Concomitant]
     Active Substance: DABIGATRAN ETEXILATE MESYLATE
     Dosage: UNK UKN, UNK
  8. GLEEVEC [Suspect]
     Active Substance: IMATINIB MESYLATE
     Indication: GASTROINTESTINAL STROMAL TUMOUR
     Dosage: 400 MG, DAILY
     Dates: start: 201402

REACTIONS (10)
  - Productive cough [Not Recovered/Not Resolved]
  - Arthropod infestation [Unknown]
  - Pneumonia [Unknown]
  - Thyroid disorder [Unknown]
  - Rash [Unknown]
  - Skin exfoliation [Unknown]
  - Skin reaction [Unknown]
  - Drug hypersensitivity [Unknown]
  - Pruritus [Unknown]
  - Skin ulcer [Unknown]
